FAERS Safety Report 5494078-4 (Version None)
Quarter: 2007Q4

REPORT INFORMATION
  Report Type: 
  Country: None (occurrence: None)
  Receive Date: 20071023
  Receipt Date: 20071011
  Transmission Date: 20080405
  Serious: Yes (Other)
  Sender: FDA-Public Use
  Company Number: US-PFIZER INC-2007087110

PATIENT
  Sex: Male
  Weight: 68 kg

DRUGS (2)
  1. CHANTIX [Suspect]
     Indication: SMOKING CESSATION THERAPY
  2. ALL OTHER THERAPEUTIC PRODUCTS [Concomitant]

REACTIONS (7)
  - BEDRIDDEN [None]
  - DYSPNOEA [None]
  - MALAISE [None]
  - MIGRAINE [None]
  - NAUSEA [None]
  - NIGHTMARE [None]
  - PAIN [None]
